FAERS Safety Report 21729861 (Version 1)
Quarter: 2022Q4

REPORT INFORMATION
  Report Type: Spontaneous
  Country: FR (occurrence: FR)
  Receive Date: 20221214
  Receipt Date: 20221214
  Transmission Date: 20230112
  Serious: Yes (Other)
  Sender: FDA-Public Use
  Company Number: FR-JNJFOC-20221211819

PATIENT
  Sex: Male

DRUGS (1)
  1. TECLISTAMAB [Suspect]
     Active Substance: TECLISTAMAB
     Indication: Plasma cell myeloma
     Route: 065

REACTIONS (4)
  - Sepsis [Unknown]
  - Clostridium colitis [Unknown]
  - Cytopenia [Unknown]
  - Therapy partial responder [Unknown]
